FAERS Safety Report 23172685 (Version 2)
Quarter: 2024Q1

REPORT INFORMATION
  Report Type: Spontaneous
  Country: JP (occurrence: JP)
  Receive Date: 20231110
  Receipt Date: 20240315
  Transmission Date: 20240409
  Serious: Yes (Hospitalization)
  Sender: FDA-Public Use
  Company Number: JP-ELI_LILLY_AND_COMPANY-JP202311001088

PATIENT
  Age: 86 Year
  Sex: Female
  Weight: 63 kg

DRUGS (4)
  1. RETEVMO [Suspect]
     Active Substance: SELPERCATINIB
     Indication: Lung neoplasm malignant
     Dosage: 160 MG, BID
     Route: 048
     Dates: start: 20230927, end: 20231016
  2. LAFUTIDINE [Concomitant]
     Active Substance: LAFUTIDINE
  3. DIMEMORFAN PHOSPHATE [Concomitant]
     Active Substance: DIMEMORFAN PHOSPHATE
  4. CARBOCYSTEINE [Concomitant]
     Active Substance: CARBOCYSTEINE

REACTIONS (5)
  - Movement disorder [Unknown]
  - Glossitis [Unknown]
  - Stomatitis [Recovering/Resolving]
  - Dry mouth [Recovering/Resolving]
  - Pyrexia [Unknown]

NARRATIVE: CASE EVENT DATE: 20231016
